FAERS Safety Report 10667945 (Version 1)
Quarter: 2014Q4

REPORT INFORMATION
  Report Type: Spontaneous
  Country: GB (occurrence: GB)
  Receive Date: 20141222
  Receipt Date: 20141222
  Transmission Date: 20150529
  Serious: Yes (Other)
  Sender: FDA-Public Use
  Company Number: ALCN2014GB007047

PATIENT
  Age: 57 Year
  Sex: Male

DRUGS (1)
  1. FLUORESCEIN SODIUM. [Suspect]
     Active Substance: FLUORESCEIN SODIUM
     Indication: INTRAOCULAR PRESSURE TEST
     Route: 047

REACTIONS (3)
  - Eye discharge [Not Recovered/Not Resolved]
  - Product colour issue [Unknown]
  - Visual impairment [Recovered/Resolved]
